FAERS Safety Report 5313344-6 (Version None)
Quarter: 2007Q1

REPORT INFORMATION
  Report Type: 
  Country: None (occurrence: None)
  Receive Date: 20070201
  Receipt Date: 20061206
  Transmission Date: 20070707
  Serious: No
  Sender: FDA-Public Use
  Company Number: VNL_0330_2006

PATIENT
  Age: 70 Year
  Sex: Female
  Weight: 115.2136 kg

DRUGS (9)
  1. APOKYN [Suspect]
     Indication: PARKINSON'S DISEASE
     Dosage: 0.8 ML VARIABLE SC
     Route: 058
     Dates: start: 20061001
  2. METFORMIN HCL [Concomitant]
  3. SINEMET [Concomitant]
  4. MIRAPEX [Concomitant]
  5. SENNA [Concomitant]
  6. TOPROL-XL [Concomitant]
  7. LIPITOR [Concomitant]
  8. CALCIUM CHLORIDE [Concomitant]
  9. IRON [Concomitant]

REACTIONS (1)
  - INJECTION SITE PAIN [None]
